FAERS Safety Report 18661404 (Version 1)
Quarter: 2020Q4

REPORT INFORMATION
  Report Type: Spontaneous
  Country: US (occurrence: US)
  Receive Date: 20201224
  Receipt Date: 20201224
  Transmission Date: 20210114
  Serious: No
  Sender: FDA-Public Use
  Company Number: US-TAKEDA-2020TUS058707

PATIENT
  Sex: Female

DRUGS (1)
  1. LIALDA [Suspect]
     Active Substance: MESALAMINE
     Indication: COLITIS
     Dosage: 1.2 GRAM, BID
     Route: 065
     Dates: start: 2014

REACTIONS (3)
  - Product prescribing error [Unknown]
  - Illness [Unknown]
  - Oropharyngeal discomfort [Unknown]
